FAERS Safety Report 14447191 (Version 2)
Quarter: 2018Q2

REPORT INFORMATION
  Report Type: Report from Study
  Country: FR (occurrence: FR)
  Receive Date: 20180126
  Receipt Date: 20180403
  Transmission Date: 20180711
  Serious: Yes (Hospitalization)
  Sender: FDA-Public Use
  Company Number: PHHO2018FR000956

PATIENT
  Age: 59 Year
  Sex: Female

DRUGS (2)
  1. OXYNORM [Concomitant]
     Active Substance: OXYCODONE HYDROCHLORIDE
     Indication: PAIN
     Dosage: 10 MG, UNK
     Route: 048
     Dates: start: 2017
  2. RAD 666 / RAD 001A [Suspect]
     Active Substance: EVEROLIMUS
     Indication: NEOPLASM
     Dosage: 10 MG, QD
     Route: 048
     Dates: start: 20171108, end: 20180108

REACTIONS (1)
  - Pericardial effusion [Recovered/Resolved]

NARRATIVE: CASE EVENT DATE: 20180108
